FAERS Safety Report 12252689 (Version 2)
Quarter: 2016Q2

REPORT INFORMATION
  Report Type: Spontaneous
  Country: US (occurrence: US)
  Receive Date: 20160411
  Receipt Date: 20160523
  Transmission Date: 20160902
  Serious: No
  Sender: FDA-Public Use
  Company Number: US-PFIZER INC-2016170017

PATIENT
  Age: 78 Year
  Sex: Male

DRUGS (1)
  1. AMIODARONE HCL [Suspect]
     Active Substance: AMIODARONE HYDROCHLORIDE
     Indication: CARDIAC DISORDER
     Dosage: 100 MG, 2X/DAY
     Dates: start: 20151208

REACTIONS (1)
  - Muscular weakness [Recovering/Resolving]

NARRATIVE: CASE EVENT DATE: 20151208
